FAERS Safety Report 7366894-5 (Version None)
Quarter: 2011Q1

REPORT INFORMATION
  Report Type: 
  Country: None (occurrence: None)
  Receive Date: 20110322
  Receipt Date: 20110317
  Transmission Date: 20110831
  Serious: Yes (Death)
  Sender: FDA-Public Use
  Company Number: A0919286A

PATIENT
  Age: 52 Year
  Sex: Male

DRUGS (3)
  1. IMMUNE GLOBULIN INTRAVENOUS (HUMAN) [Concomitant]
  2. PLATELETS [Concomitant]
  3. PROMACTA [Suspect]
     Dosage: 75MG PER DAY
     Route: 048
     Dates: start: 20101026, end: 20101210

REACTIONS (2)
  - DEATH [None]
  - DRUG INEFFECTIVE [None]
